FAERS Safety Report 9900449 (Version 1)
Quarter: 2014Q1

REPORT INFORMATION
  Report Type: Spontaneous
  Country: US (occurrence: US)
  Receive Date: 20140217
  Receipt Date: 20140217
  Transmission Date: 20141002
  Serious: Yes (Hospitalization)
  Sender: FDA-Public Use
  Company Number: US-GLENMARK GENERICS INC.-2014GMK008447

PATIENT
  Age: 60 Year
  Sex: Male

DRUGS (1)
  1. HYDRALAZINE HCL [Suspect]
     Indication: PRODUCT USED FOR UNKNOWN INDICATION
     Dosage: UNK

REACTIONS (13)
  - Pericarditis [Recovered/Resolved]
  - Chest pain [Recovered/Resolved]
  - Pericardial rub [Recovered/Resolved]
  - Atrial fibrillation [Recovered/Resolved]
  - Pericardial effusion [Recovered/Resolved]
  - Blood pressure systolic inspiratory decreased [Recovered/Resolved]
  - Lupus-like syndrome [Recovered/Resolved]
  - Histone antibody positive [Recovered/Resolved]
  - Transaminases increased [Recovered/Resolved]
  - Arthritis [Recovered/Resolved]
  - Leukopenia [Recovered/Resolved]
  - Pyrexia [Recovered/Resolved]
  - Antinuclear antibody positive [Recovered/Resolved]
